FAERS Safety Report 13180296 (Version 1)
Quarter: 2017Q1

REPORT INFORMATION
  Report Type: Spontaneous
  Country: GB (occurrence: GB)
  Receive Date: 20170202
  Receipt Date: 20170202
  Transmission Date: 20170428
  Serious: Yes (Other)
  Sender: FDA-Public Use
  Company Number: GB-SUNOVION-2017SUN000409

PATIENT

DRUGS (9)
  1. FELODIPINE W/METOPROLOL SUCCINATE [Concomitant]
     Dosage: UNK
     Dates: start: 20160720
  2. BENDROFLUMETHIAZIDE W/POTASSIUM CHLORIDE [Concomitant]
     Dosage: UNK
     Dates: start: 20160720
  3. TERBUTALINE [Concomitant]
     Active Substance: TERBUTALINE
     Dosage: UNK
     Dates: start: 20160720
  4. AMOXICILLIN W/CLARITHROMYCIN/PANTOPRAZOLE [Concomitant]
     Dosage: UNK
     Dates: start: 20161216, end: 20161223
  5. INDACATEROL AND GLYCOPYRROLATE [Suspect]
     Active Substance: GLYCOPYRROLATE\INDACATEROL MALEATE
     Indication: PRODUCT USED FOR UNKNOWN INDICATION
     Dosage: UNK
     Route: 065
     Dates: start: 20161212
  6. TIOTROPIUM [Concomitant]
     Active Substance: TIOTROPIUM
  7. CANDESARTAN CILEXETIL AND HYDROCHLOROTHIAZIDE [Concomitant]
     Active Substance: CANDESARTAN CILEXETIL\HYDROCHLOROTHIAZIDE
     Dosage: UNK
     Dates: start: 20160720
  8. SIMVASTATIN. [Concomitant]
     Active Substance: SIMVASTATIN
     Dosage: UNK
     Dates: start: 20160720
  9. FLUTICASONE W/FORMOTEROL [Concomitant]
     Dosage: UNK
     Dates: start: 20160720

REACTIONS (1)
  - Muscle spasms [Recovering/Resolving]

NARRATIVE: CASE EVENT DATE: 20170109
